FAERS Safety Report 13350109 (Version 1)
Quarter: 2017Q1

REPORT INFORMATION
  Report Type: Spontaneous
  Country: CN (occurrence: CN)
  Receive Date: 20170320
  Receipt Date: 20170320
  Transmission Date: 20170429
  Serious: Yes (Hospitalization, Other)
  Sender: FDA-Public Use
  Company Number: CN-VIIV HEALTHCARE LIMITED-CN2017GSK035157

PATIENT
  Sex: Female
  Weight: 50 kg

DRUGS (4)
  1. HEPSERA [Suspect]
     Active Substance: ADEFOVIR DIPIVOXIL
     Indication: HEPATITIS B
     Dosage: 1 UNK, QD
     Route: 048
     Dates: start: 2012, end: 2015
  2. SANJIN TABLET [Suspect]
     Active Substance: HERBALS
     Indication: HAEMATURIA
     Route: 048
  3. HEPTODIN [Suspect]
     Active Substance: LAMIVUDINE
     Indication: HEPATITIS B
     Dosage: 1 UNK, QD
     Route: 048
     Dates: start: 1998
  4. ADEFOVIR DIPIVOXIL. [Suspect]
     Active Substance: ADEFOVIR DIPIVOXIL
     Indication: HEPATITIS B
     Dosage: 1 UNK, QD
     Route: 048
     Dates: start: 2015

REACTIONS (9)
  - Kyphosis [Not Recovered/Not Resolved]
  - Viral load increased [Recovering/Resolving]
  - Nasopharyngitis [Recovering/Resolving]
  - Presbyopia [Recovering/Resolving]
  - Hepatitis [Unknown]
  - Fatigue [Not Recovered/Not Resolved]
  - Myopia [Not Recovered/Not Resolved]
  - Productive cough [Recovering/Resolving]
  - Haematuria [Recovering/Resolving]

NARRATIVE: CASE EVENT DATE: 2012
